FAERS Safety Report 23052077 (Version 3)
Quarter: 2024Q1

REPORT INFORMATION
  Report Type: Spontaneous
  Country: US (occurrence: US)
  Receive Date: 20231010
  Receipt Date: 20240319
  Transmission Date: 20240409
  Serious: Yes (Other)
  Sender: FDA-Public Use
  Company Number: US-MARINUS PHARMACEUTICALS, INC.-MAR2023000127

PATIENT

DRUGS (5)
  1. ZTALMY [Suspect]
     Active Substance: GANAXOLONE
     Indication: CDKL5 deficiency disorder
     Dosage: 5.8 MILLILITER, TID
     Route: 048
     Dates: start: 2022, end: 2023
  2. ZTALMY [Suspect]
     Active Substance: GANAXOLONE
     Dosage: 6.5 MILLILITER, TID
     Route: 048
     Dates: start: 2023
  3. CLONAZEPAM [Concomitant]
     Active Substance: CLONAZEPAM
     Indication: Product used for unknown indication
     Dosage: 0.5 MILLIGRAM, TID (ONLY TAKING QAM)
  4. BRIVARACETAM [Concomitant]
     Active Substance: BRIVARACETAM
     Indication: Product used for unknown indication
     Dosage: 40 MILLIGRAM, BID
  5. DIVALPROEX SODIUM [Concomitant]
     Active Substance: DIVALPROEX SODIUM
     Indication: Product used for unknown indication
     Dosage: 250 MILLIGRAM, TID

REACTIONS (1)
  - Change in seizure presentation [Unknown]

NARRATIVE: CASE EVENT DATE: 20230915
